FAERS Safety Report 26219035 (Version 1)
Quarter: 2025Q4

REPORT INFORMATION
  Report Type: Spontaneous
  Country: JP (occurrence: JP)
  Receive Date: 20251231
  Receipt Date: 20251231
  Transmission Date: 20260119
  Serious: Yes (Other)
  Sender: ABBVIE
  Company Number: JP-JNJFOC-20251226746

PATIENT
  Age: 90 Year
  Sex: Female

DRUGS (8)
  1. IMBRUVICA [Suspect]
     Active Substance: IBRUTINIB
     Indication: Mantle cell lymphoma recurrent
     Dosage: DECREASED
     Route: 048
     Dates: start: 202506, end: 202506
  2. IMBRUVICA [Suspect]
     Active Substance: IBRUTINIB
     Indication: Mantle cell lymphoma recurrent
     Dosage: DECREASED
     Route: 048
     Dates: start: 202506
  3. IMBRUVICA [Suspect]
     Active Substance: IBRUTINIB
     Indication: Mantle cell lymphoma recurrent
     Route: 048
     Dates: start: 202404, end: 2024
  4. IMBRUVICA [Suspect]
     Active Substance: IBRUTINIB
     Indication: Mantle cell lymphoma recurrent
     Route: 048
     Dates: start: 202412, end: 202505
  5. VENETOCLAX [Concomitant]
     Active Substance: VENETOCLAX
     Indication: Mantle cell lymphoma refractory
     Route: 065
     Dates: start: 202504, end: 2025
  6. VENETOCLAX [Concomitant]
     Active Substance: VENETOCLAX
     Indication: Mantle cell lymphoma refractory
     Route: 065
     Dates: start: 202505, end: 202505
  7. VENETOCLAX [Concomitant]
     Active Substance: VENETOCLAX
     Indication: Mantle cell lymphoma refractory
     Route: 065
     Dates: start: 202505, end: 202505
  8. VENETOCLAX [Concomitant]
     Active Substance: VENETOCLAX
     Indication: Mantle cell lymphoma refractory
     Route: 065
     Dates: start: 202505, end: 202505

REACTIONS (4)
  - Cardiotoxicity [Unknown]
  - White blood cell count decreased [Recovered/Resolved]
  - Dermatitis acneiform [Recovered/Resolved]
  - Supraventricular tachycardia [Unknown]

NARRATIVE: CASE EVENT DATE: 20250601
